FAERS Safety Report 25812283 (Version 2)
Quarter: 2025Q4

REPORT INFORMATION
  Report Type: Spontaneous
  Country: CA (occurrence: CA)
  Receive Date: 20250917
  Receipt Date: 20251030
  Transmission Date: 20260117
  Serious: Yes (Other)
  Sender: PFIZER
  Company Number: CA-PFIZER INC-PV202500068300

PATIENT
  Age: 33 Year
  Sex: Female

DRUGS (3)
  1. FRAGMIN [Suspect]
     Active Substance: DALTEPARIN SODIUM
     Indication: Deep vein thrombosis
     Dosage: 15000 IU, 1X/DAY
     Route: 058
     Dates: start: 20241012, end: 202509
  2. FRAGMIN [Suspect]
     Active Substance: DALTEPARIN SODIUM
     Dosage: 15000 IU, 1X/DAY
     Route: 058
     Dates: start: 202510
  3. WARFARIN [Concomitant]
     Active Substance: WARFARIN
     Dosage: UNK
     Dates: start: 2025

REACTIONS (4)
  - International normalised ratio increased [Unknown]
  - Inappropriate schedule of product administration [Unknown]
  - Condition aggravated [Unknown]
  - Abdominal distension [Unknown]

NARRATIVE: CASE EVENT DATE: 20241101
